FAERS Safety Report 23877270 (Version 1)
Quarter: 2024Q2

REPORT INFORMATION
  Report Type: Spontaneous
  Country: SA (occurrence: SA)
  Receive Date: 20240521
  Receipt Date: 20240521
  Transmission Date: 20240716
  Serious: Yes (Life-Threatening, Hospitalization)
  Sender: FDA-Public Use
  Company Number: SA-STRIDES ARCOLAB LIMITED-2024SP005809

PATIENT
  Age: 53 Year
  Sex: Female

DRUGS (10)
  1. ACYCLOVIR [Suspect]
     Active Substance: ACYCLOVIR
     Indication: Herpes simplex
     Dosage: 10 MILLIGRAM/KILOGRAM, EVERY 8 HRS
     Route: 065
  2. ACYCLOVIR [Suspect]
     Active Substance: ACYCLOVIR
     Indication: Herpes simplex encephalitis
  3. ACYCLOVIR [Suspect]
     Active Substance: ACYCLOVIR
     Indication: Encephalitis viral
  4. ACYCLOVIR [Suspect]
     Active Substance: ACYCLOVIR
     Indication: Parechovirus infection
  5. FOSCARNET [Suspect]
     Active Substance: FOSCARNET
     Indication: Herpes simplex
     Dosage: UNK
     Route: 065
  6. FOSCARNET [Suspect]
     Active Substance: FOSCARNET
     Indication: Herpes simplex encephalitis
  7. FOSCARNET [Suspect]
     Active Substance: FOSCARNET
     Indication: Encephalitis viral
  8. FOSCARNET [Suspect]
     Active Substance: FOSCARNET
     Indication: Parechovirus infection
  9. DEXAMETHASONE [Concomitant]
     Active Substance: DEXAMETHASONE
     Indication: Glioblastoma multiforme
     Dosage: UNK
     Route: 065
  10. TEMOZOLOMIDE [Concomitant]
     Active Substance: TEMOZOLOMIDE
     Indication: Glioblastoma multiforme
     Dosage: UNK
     Route: 065

REACTIONS (2)
  - Therapy non-responder [Unknown]
  - Disease progression [Unknown]
